FAERS Safety Report 9742418 (Version 2)
Quarter: 2013Q4

REPORT INFORMATION
  Report Type: Spontaneous
  Country: US (occurrence: US)
  Receive Date: 20131210
  Receipt Date: 20131220
  Transmission Date: 20140711
  Serious: Yes (Other)
  Sender: FDA-Public Use
  Company Number: US-BAXTER-2013BAX048789

PATIENT
  Age: 54 Year
  Sex: Male

DRUGS (4)
  1. DIANEAL LOW CALCIUM [Suspect]
     Indication: PERITONEAL DIALYSIS
     Route: 033
     Dates: end: 20131106
  2. DIANEAL LOW CALCIUM [Suspect]
     Route: 033
     Dates: start: 20131104
  3. DIANEAL LOW CALCIUM [Suspect]
     Indication: PERITONEAL DIALYSIS
     Route: 033
     Dates: start: 20131101, end: 20131106
  4. DIANEAL LOW CALCIUM [Suspect]
     Route: 033
     Dates: start: 20131104

REACTIONS (1)
  - Inguinal hernia [Recovered/Resolved]
